FAERS Safety Report 22613341 (Version 1)
Quarter: 2023Q2

REPORT INFORMATION
  Report Type: Spontaneous
  Country: SE (occurrence: SE)
  Receive Date: 20230619
  Receipt Date: 20230619
  Transmission Date: 20230721
  Serious: Yes (Other)
  Sender: FDA-Public Use
  Company Number: None

PATIENT
  Age: 73 Year
  Sex: Male
  Weight: 87 kg

DRUGS (30)
  1. SOTORASIB [Suspect]
     Active Substance: SOTORASIB
     Indication: Lung cancer metastatic
     Dosage: 4X1
     Route: 048
     Dates: start: 20220823
  2. SOTORASIB [Suspect]
     Active Substance: SOTORASIB
     Dosage: DOSE REDUCED
     Route: 048
  3. ENTRESTO [Concomitant]
     Active Substance: SACUBITRIL\VALSARTAN
     Dosage: 1X2 UNTIL FURTHER NOTICE
     Dates: start: 20220908
  4. ATORVASTATIN [Concomitant]
     Active Substance: ATORVASTATIN
     Dosage: 1 AT 8 PM UNTIL FURTHER NOTICE
     Dates: start: 20190517, end: 20221018
  5. ALLOPURINOL [Concomitant]
     Active Substance: ALLOPURINOL
     Dosage: 2X1 UNTIL FURTHER NOTICE
     Dates: start: 20220712
  6. ESOMEPRAZOLE [Concomitant]
     Active Substance: ESOMEPRAZOLE
     Dosage: 1X1 UNTIL FURTHER NOTICE
     Dates: start: 20211110
  7. DESLORATADINE [Concomitant]
     Active Substance: DESLORATADINE
     Dosage: 1X1 AS NEEDED UNTIL FURTHER NOTICE
     Dates: start: 20220124
  8. LINAGLIPTIN [Concomitant]
     Active Substance: LINAGLIPTIN
     Dosage: 1X1 UNTIL FURTHER NOTICE
     Dates: start: 20220623
  9. Furix [Concomitant]
     Dosage: 1X1 AS NEEDED UNTIL FURTHER NOTICE
     Dates: start: 20180121
  10. Furix [Concomitant]
     Dosage: 6 AS NEEDED UNTIL FURTHER NOTICE
     Dates: start: 20180121
  11. Furix [Concomitant]
     Dosage: 3 AT 8 AM + 3 AT 12 O^CLOCK UNTIL FURTHER NOTICE
     Dates: start: 20220822
  12. TOUJEO [Concomitant]
     Active Substance: INSULIN GLARGINE
     Dosage: 43 AT 8.00 PM UNTIL FURTHER NOTICE
     Dates: start: 20220720
  13. ISOPHANE INSULIN [Concomitant]
     Active Substance: INSULIN NOS
     Dosage: 31 AT 8 AM UNTIL FURTHER NOTICE
     Dates: start: 20220811
  14. METFORMIN HYDROCHLORIDE [Concomitant]
     Active Substance: METFORMIN HYDROCHLORIDE
     Dosage: TABLET AT BREAKFAST AND DINNER
     Dates: start: 20201014
  15. BISOPROLOL [Concomitant]
     Active Substance: BISOPROLOL
     Dosage: 1X2 UNTIL FURTHER NOTICE
     Dates: start: 20190624
  16. OXAZEPAM [Concomitant]
     Active Substance: OXAZEPAM
     Dosage: 0.5-1 AS NEEDED MAXIMUM 2 / DAY
     Dates: start: 20210506
  17. OXYCODONE DEPOT ORION [Concomitant]
     Dosage: 2X3 UNTIL FURTHER NOTICE
     Dates: start: 20220309
  18. ELOCON [Concomitant]
     Active Substance: MOMETASONE FUROATE
     Dosage: 1 AT 10 PM
     Dates: start: 20220124
  19. COLCHICINE [Concomitant]
     Active Substance: COLCHICINE
     Dosage: ACCORDING TO PRESCRIPTION
     Dates: start: 20211230
  20. UREA [Concomitant]
     Active Substance: UREA
     Dosage: 1 AS NEEDED UNTIL FURTHER NOTICE
     Dates: start: 20220405
  21. DAPAGLIFLOZIN [Concomitant]
     Active Substance: DAPAGLIFLOZIN
     Dosage: 1 AT BREAKFAST UNTIL FURTHER NOTICE
     Dates: start: 20220421
  22. CLOBETASOL [Concomitant]
     Active Substance: CLOBETASOL
     Dosage: ACCORDING TO PRESCRIPTION
     Dates: start: 20220405
  23. NITROLINGUAL [Concomitant]
     Active Substance: NITROGLYCERIN
     Dosage: 1-2 AS NEEDED
     Dates: start: 20171010
  24. OXYCODONE HYDROCHLORIDE [Concomitant]
     Active Substance: OXYCODONE HYDROCHLORIDE
     Dosage: 1X3 AS NEEDED
     Dates: start: 20220105
  25. PREDNISOLONE [Concomitant]
     Active Substance: PREDNISOLONE
     Dosage: 1X1 UNTIL FURTHER NOTICE
     Dates: start: 20220114
  26. ELIQUIS [Concomitant]
     Active Substance: APIXABAN
     Dosage: 1X2 UNTIL FURTHER NOTICE
     Dates: start: 20180427
  27. MIRTAZAPINE [Concomitant]
     Active Substance: MIRTAZAPINE
     Dosage: 1 AT 8 PM UNTIL FURTHER NOTICE
     Dates: start: 20220929, end: 20221018
  28. EPLERENON STADA [Concomitant]
     Dosage: 1X1 UNTIL FURTHER NOTICE
     Dates: start: 20190924
  29. METOLAZON ABCUR [Concomitant]
     Dosage: ACCORDING TO PRESCRIPTION
     Dates: start: 20220411
  30. BETAMETHASONE [Concomitant]
     Active Substance: BETAMETHASONE
     Dosage: ACCORDING TO PRESCRIPTION
     Dates: start: 20220302

REACTIONS (3)
  - Abdominal discomfort [Not Recovered/Not Resolved]
  - Dyspepsia [Not Recovered/Not Resolved]
  - Back pain [Not Recovered/Not Resolved]

NARRATIVE: CASE EVENT DATE: 20221012
